FAERS Safety Report 4703410-8 (Version None)
Quarter: 2005Q2

REPORT INFORMATION
  Report Type: 
  Country: None (occurrence: None)
  Receive Date: 20050629
  Receipt Date: 20050616
  Transmission Date: 20051028
  Serious: Yes (Disabling)
  Sender: FDA-Public Use
  Company Number: RENA-11332

PATIENT
  Age: 55 Year
  Sex: Male
  Weight: 51.6 kg

DRUGS (14)
  1. RENAGEL [Suspect]
     Indication: HYPERPHOSPHATAEMIA
     Dosage: 1.5 G TID PO
     Route: 048
     Dates: start: 20040901
  2. RENAGEL [Suspect]
     Indication: HYPERPHOSPHATAEMIA
     Dosage: 2.25 G DAILY PO
     Route: 048
     Dates: start: 20050427
  3. KALIMATE [Concomitant]
  4. NIVADIL [Concomitant]
  5. CARDENALIN [Concomitant]
  6. HALCION [Concomitant]
  7. VERAPAMIL [Concomitant]
  8. ALOSITOL [Concomitant]
  9. FERRO-GRADUMET [Concomitant]
  10. MICARDIS [Concomitant]
  11. ALDOMET [Concomitant]
  12. RISUMIC [Concomitant]
  13. PURSENNID [Suspect]
     Indication: CONSTIPATION
     Dosage: 2 QD PO
     Route: 048
  14. CALTAN [Suspect]
     Indication: HYPERPHOSPHATAEMIA
     Dosage: 1 PO
     Route: 048
     Dates: start: 20050131

REACTIONS (4)
  - DIVERTICULITIS [None]
  - LARGE INTESTINE PERFORATION [None]
  - PERITONITIS [None]
  - RUPTURED DIVERTICULUM OF COLON [None]
